FAERS Safety Report 9082754 (Version 1)
Quarter: 2013Q1

REPORT INFORMATION
  Report Type: Spontaneous
  Country: MX (occurrence: MX)
  Receive Date: 20130130
  Receipt Date: 20130130
  Transmission Date: 20140127
  Serious: Yes (Other)
  Sender: FDA-Public Use
  Company Number: PHHY2013MX008183

PATIENT
  Age: 79 Year
  Sex: Female

DRUGS (1)
  1. EXFORGE HCT [Suspect]
     Indication: HYPERTENSION
     Dosage: 0.5 DF;0.5 TABLET (VALSARTAN 320MG, AMLODIPINE 10MG AND HYDROCHLOROTHIAZIDE 25MG) DAILY
     Route: 048
     Dates: start: 20120811

REACTIONS (6)
  - Pneumonia [Recovered/Resolved]
  - Cough [Recovered/Resolved]
  - Influenza [Recovered/Resolved]
  - Pyrexia [Recovered/Resolved]
  - Gastrointestinal disorder [Recovered/Resolved]
  - Wrong technique in drug usage process [Unknown]
